FAERS Safety Report 14610556 (Version 2)
Quarter: 2018Q4

REPORT INFORMATION
  Report Type: Report from Study
  Country: FI (occurrence: FI)
  Receive Date: 20180307
  Receipt Date: 20181219
  Transmission Date: 20190204
  Serious: Yes (Hospitalization, Other)
  Sender: FDA-Public Use
  Company Number: FI-MYLANLABS-2018M1010077

PATIENT
  Sex: Male
  Weight: 127.7 kg

DRUGS (16)
  1. LEPONEX [Suspect]
     Active Substance: CLOZAPINE
     Dosage: 50 MG, QD
     Dates: start: 20180108, end: 20180109
  2. LEPONEX [Suspect]
     Active Substance: CLOZAPINE
     Dosage: 75 MG, QD
     Dates: start: 20180203, end: 20180204
  3. LEPONEX [Suspect]
     Active Substance: CLOZAPINE
     Dosage: 25 MG, QD
     Dates: start: 20180106, end: 20180107
  4. LEPONEX [Suspect]
     Active Substance: CLOZAPINE
     Dosage: 125 MG, QD
     Dates: start: 20180114, end: 20180115
  5. LEPONEX [Suspect]
     Active Substance: CLOZAPINE
     Dosage: 200 MG, QD
     Dates: start: 20180120, end: 20180121
  6. LEPONEX [Suspect]
     Active Substance: CLOZAPINE
     Dosage: 250 MG, QD
     Dates: start: 20180124, end: 20180125
  7. PALIPERIDONE. [Concomitant]
     Active Substance: PALIPERIDONE
     Indication: PRODUCT USED FOR UNKNOWN INDICATION
     Dosage: UNK
  8. LORAZEPAM. [Concomitant]
     Active Substance: LORAZEPAM
     Indication: PRODUCT USED FOR UNKNOWN INDICATION
  9. ZUCLOPENTHIXOL [Concomitant]
     Active Substance: ZUCLOPENTHIXOL
     Indication: PRODUCT USED FOR UNKNOWN INDICATION
     Dosage: UNK, PRN
  10. PARACETAMOL [Concomitant]
     Active Substance: ACETAMINOPHEN
     Indication: PRODUCT USED FOR UNKNOWN INDICATION
     Dosage: UNK, PRN
  11. LEPONEX [Suspect]
     Active Substance: CLOZAPINE
     Indication: SCHIZOPHRENIA
     Dosage: 12.5 MG, QD
     Dates: start: 20180105, end: 20180105
  12. LEPONEX [Suspect]
     Active Substance: CLOZAPINE
     Dosage: 150 MG, QD
     Dates: start: 20180116, end: 20180117
  13. LEPONEX [Suspect]
     Active Substance: CLOZAPINE
     Dosage: 175 MG, QD
     Dates: start: 20180118, end: 20180119
  14. LEPONEX [Suspect]
     Active Substance: CLOZAPINE
     Dosage: 100 MG, QD
     Dates: start: 20180112, end: 20180113
  15. LEPONEX [Suspect]
     Active Substance: CLOZAPINE
     Dosage: 75 MG, QD
     Dates: start: 20180110, end: 20180111
  16. LEPONEX [Suspect]
     Active Substance: CLOZAPINE
     Dosage: 50 MG, QD
     Dates: start: 20180126, end: 20180202

REACTIONS (37)
  - Mental disorder [Unknown]
  - Blood creatinine decreased [Not Recovered/Not Resolved]
  - Gamma-glutamyltransferase increased [Recovered/Resolved]
  - Lymphocyte percentage decreased [Recovered/Resolved]
  - Neutrophil count increased [Not Recovered/Not Resolved]
  - Monocyte count increased [Recovered/Resolved]
  - PO2 decreased [Not Recovered/Not Resolved]
  - Nasopharyngitis [Recovered/Resolved]
  - Basophil count increased [Recovered/Resolved]
  - Haemoglobin increased [Recovered/Resolved]
  - N-terminal prohormone brain natriuretic peptide increased [Not Recovered/Not Resolved]
  - Pyrexia [Recovered/Resolved]
  - Vomiting [Unknown]
  - White blood cell count increased [Not Recovered/Not Resolved]
  - Blood sodium decreased [Not Recovered/Not Resolved]
  - Lymphocyte count increased [Recovered/Resolved]
  - Blood alkaline phosphatase increased [Recovering/Resolving]
  - International normalised ratio increased [Recovering/Resolving]
  - Diarrhoea [Recovered/Resolved]
  - Red blood cell count increased [Recovered/Resolved]
  - Blood lactic acid increased [Unknown]
  - Eosinophilia [Recovered/Resolved]
  - Blood calcium decreased [Recovered/Resolved]
  - Myelocyte percentage increased [Recovering/Resolving]
  - Red blood cell sedimentation rate increased [Unknown]
  - Gastroenteritis [Unknown]
  - C-reactive protein increased [Not Recovered/Not Resolved]
  - Blood potassium decreased [Recovered/Resolved]
  - Blood pH increased [Recovered/Resolved]
  - Blood albumin decreased [Unknown]
  - Metamyelocyte percentage increased [Not Recovered/Not Resolved]
  - Blood osmolarity decreased [Unknown]
  - Haematocrit increased [Recovered/Resolved]
  - Troponin T increased [Recovered/Resolved]
  - Colitis [Unknown]
  - Anal fistula [Unknown]
  - Blood bilirubin decreased [Recovered/Resolved]

NARRATIVE: CASE EVENT DATE: 2018
